FAERS Safety Report 6523832-2 (Version None)
Quarter: 2009Q4

REPORT INFORMATION
  Report Type: 
  Country: None (occurrence: None)
  Receive Date: 20091231
  Receipt Date: 20091228
  Transmission Date: 20100525
  Serious: Yes (Death, Hospitalization)
  Sender: FDA-Public Use
  Company Number: FR-ROCHE-505382

PATIENT
  Sex: Male

DRUGS (7)
  1. CAPECITABINE [Suspect]
     Indication: METASTATIC GASTRIC CANCER
     Dosage: CYCLIC, 02 COURSES
     Route: 048
     Dates: start: 20061220
  2. EPIRUBICIN [Suspect]
     Indication: METASTATIC GASTRIC CANCER
     Dosage: CYCLIC, 02 COURSES
     Route: 042
     Dates: start: 20061220
  3. CISPLATIN [Suspect]
     Indication: METASTATIC GASTRIC CANCER
     Dosage: CYCLIC, 02 COURSES
     Route: 042
     Dates: start: 20061220
  4. IMOVANE [Concomitant]
     Route: 065
  5. MOPRAL [Concomitant]
     Route: 065
  6. FORLAX [Concomitant]
     Route: 065
  7. MOTILYO [Concomitant]
     Route: 060

REACTIONS (3)
  - ANAEMIA [None]
  - GENERAL PHYSICAL HEALTH DETERIORATION [None]
  - MALIGNANT NEOPLASM PROGRESSION [None]
